FAERS Safety Report 7229793-5 (Version None)
Quarter: 2011Q1

REPORT INFORMATION
  Report Type: 
  Country: None (occurrence: None)
  Receive Date: 20110117
  Receipt Date: 20110111
  Transmission Date: 20110831
  Serious: Yes (Hospitalization)
  Sender: FDA-Public Use
  Company Number: GR-SANOFI-AVENTIS-2011SA002194

PATIENT
  Age: 62 Year
  Sex: Female

DRUGS (8)
  1. APIDRA SOLOSTAR [Suspect]
     Route: 058
     Dates: start: 20110111
  2. SOLOSTAR [Suspect]
  3. SOLOSTAR [Suspect]
     Route: 058
  4. APIDRA SOLOSTAR [Suspect]
     Dosage: 4-5 TIMES PER MONTH
     Route: 058
  5. LANTUS [Suspect]
     Route: 058
  6. GLUCOPHAGE [Concomitant]
     Route: 048
  7. CRESTOR [Concomitant]
  8. LEVOTHYROXINE [Concomitant]
     Indication: THYROID DISORDER

REACTIONS (2)
  - HYPOGLYCAEMIA [None]
  - WRONG DRUG ADMINISTERED [None]
